FAERS Safety Report 6228951-6 (Version None)
Quarter: 2009Q2

REPORT INFORMATION
  Report Type: 
  Country: None (occurrence: None)
  Receive Date: 20090615
  Receipt Date: 20090610
  Transmission Date: 20091009
  Serious: Yes (Hospitalization)
  Sender: FDA-Public Use
  Company Number: AU-BRISTOL-MYERS SQUIBB COMPANY-14657803

PATIENT
  Age: 53 Year
  Sex: Female

DRUGS (5)
  1. DASATINIB [Suspect]
     Dosage: FORM-TABS
     Route: 048
  2. CYCLOPHOSPHAMIDE [Suspect]
  3. CYTARABINE [Suspect]
     Dosage: FORM-INJ
  4. FLUDARABINE PHOSPHATE [Suspect]
  5. IDARUBICIN HCL [Suspect]

REACTIONS (6)
  - ANOREXIA [None]
  - DIARRHOEA [None]
  - LIVER FUNCTION TEST ABNORMAL [None]
  - NEUTROPENIC COLITIS [None]
  - OEDEMA PERIPHERAL [None]
  - THROMBOCYTOPENIA [None]
